FAERS Safety Report 16508056 (Version 1)
Quarter: 2019Q3

REPORT INFORMATION
  Report Type: Spontaneous
  Country: SE (occurrence: SE)
  Receive Date: 20190702
  Receipt Date: 20190702
  Transmission Date: 20191004
  Serious: Yes (Hospitalization)
  Sender: FDA-Public Use
  Company Number: SE-ACCORD-136200

PATIENT
  Sex: Female

DRUGS (8)
  1. ALIMEMAZINE/ALIMEMAZINE TARTRATE [Suspect]
     Active Substance: TRIMEPRAZINE
     Dates: start: 20190304, end: 20190304
  2. LERGIGAN (PROMETHAZINE HYDROCHLORIDE) [Suspect]
     Active Substance: PROMETHAZINE HYDROCHLORIDE
     Dates: start: 20190304, end: 20190304
  3. MORPHINE [Suspect]
     Active Substance: MORPHINE
     Dates: start: 20190304, end: 20190304
  4. PROMETHAZINE [Suspect]
     Active Substance: PROMETHAZINE HYDROCHLORIDE
     Route: 048
     Dates: start: 20190304, end: 20190304
  5. NOZINAN [Suspect]
     Active Substance: LEVOMEPROMAZINE
     Dates: start: 20190304, end: 20190304
  6. QUETIAPINE. [Suspect]
     Active Substance: QUETIAPINE
     Dates: start: 20190304, end: 20190304
  7. STILNOCT [Suspect]
     Active Substance: ZOLPIDEM TARTRATE
     Dates: start: 20190304, end: 20190304
  8. HYDROXYZINE [Suspect]
     Active Substance: HYDROXYZINE HYDROCHLORIDE
     Dates: start: 20190304, end: 20190304

REACTIONS (3)
  - Fatigue [Unknown]
  - Intentional overdose [Unknown]
  - Intentional self-injury [Unknown]

NARRATIVE: CASE EVENT DATE: 20190304
